FAERS Safety Report 22531338 (Version 1)
Quarter: 2023Q2

REPORT INFORMATION
  Report Type: Spontaneous
  Country: KR (occurrence: KR)
  Receive Date: 20230607
  Receipt Date: 20230607
  Transmission Date: 20230722
  Serious: Yes (Hospitalization)
  Sender: FDA-Public Use
  Company Number: KR-ORGANON-O2306KOR000112

PATIENT
  Age: 60 Year
  Sex: Male
  Weight: 86 kg

DRUGS (25)
  1. COZAAR [Suspect]
     Active Substance: LOSARTAN POTASSIUM
     Indication: Essential hypertension
     Dosage: 100 MILLIGRAM
     Route: 048
     Dates: start: 20200424
  2. LOSARTAN POTASSIUM [Concomitant]
     Active Substance: LOSARTAN POTASSIUM
     Indication: Essential hypertension
     Dosage: 50 MILLIGRAM
     Route: 048
     Dates: start: 20200109, end: 20200423
  3. AMLODIPINE BESYLATE [Concomitant]
     Active Substance: AMLODIPINE BESYLATE
     Indication: Essential hypertension
     Dosage: 10 MILLIGRAM
     Route: 048
     Dates: start: 20200424, end: 20200427
  4. AMLODIPINE BESYLATE [Concomitant]
     Active Substance: AMLODIPINE BESYLATE
     Dosage: 5 MILLIGRAM
     Route: 048
     Dates: start: 20200426, end: 20200427
  5. AMLODIPINE BESYLATE [Concomitant]
     Active Substance: AMLODIPINE BESYLATE
     Dosage: 10 MILLIGRAM
     Route: 048
     Dates: start: 20200527
  6. NICARDIPINE HYDROCHLORIDE [Concomitant]
     Active Substance: NICARDIPINE HYDROCHLORIDE
     Indication: Essential hypertension
     Dosage: 3 MILLIGRAM (ROUTE: VEIN)
     Route: 042
     Dates: start: 20200425, end: 20200425
  7. TENOFOVIR DISOPROXIL FUMARATE [Concomitant]
     Active Substance: TENOFOVIR DISOPROXIL FUMARATE
     Indication: Hepatitis viral
     Dosage: 300 MILLIGRAM
     Route: 048
     Dates: start: 20200103, end: 20200115
  8. TENOFOVIR DISOPROXIL FUMARATE [Concomitant]
     Active Substance: TENOFOVIR DISOPROXIL FUMARATE
     Dosage: 300 MILLIGRAM
     Route: 048
     Dates: start: 20200424
  9. FOLIC ACID [Concomitant]
     Active Substance: FOLIC ACID
     Indication: Alcoholism
     Dosage: 3 MILLIGRAM
     Route: 048
     Dates: start: 20200103, end: 20200115
  10. LORAZEPAM [Concomitant]
     Active Substance: LORAZEPAM
     Indication: Alcoholism
     Dosage: 1 MILLIGRAM
     Route: 048
     Dates: start: 20200103, end: 20200107
  11. LACTULOSE [Concomitant]
     Active Substance: LACTULOSE
     Indication: Constipation
     Dosage: 15 MILLILITER, CONCENTRATE SOLUTION
     Route: 048
     Dates: start: 20200107, end: 20200108
  12. LACTULOSE [Concomitant]
     Active Substance: LACTULOSE
     Indication: Prophylaxis
     Dosage: 15 MILLILITER, CONCENTRATE SOLUTION
     Route: 048
     Dates: start: 20200111, end: 20200116
  13. THIAMINE HYDROCHLORIDE [Concomitant]
     Active Substance: THIAMINE HYDROCHLORIDE
     Indication: Alcoholism
     Dosage: 20 MILLIGRAM
     Route: 048
     Dates: start: 20200108, end: 20200111
  14. ACETAMINOPHEN [Concomitant]
     Active Substance: ACETAMINOPHEN
     Indication: Prophylaxis
     Dosage: 650 MILLIGRAM
     Route: 048
     Dates: start: 20200108, end: 20200108
  15. ACETAMINOPHEN [Concomitant]
     Active Substance: ACETAMINOPHEN
     Indication: Headache
     Dosage: 650 MILLIGRAM
     Route: 048
     Dates: start: 20200425, end: 20200425
  16. TENOFOVIR DISOPROXIL [Concomitant]
     Active Substance: TENOFOVIR DISOPROXIL
     Indication: Hepatitis viral
     Dosage: 1 FORMULATION
     Route: 048
     Dates: start: 20200116, end: 20200423
  17. FUROSEMIDE [Concomitant]
     Active Substance: FUROSEMIDE
     Indication: Localised oedema
     Dosage: 40 MILLIGRAM
     Route: 048
     Dates: start: 20200420, end: 20200423
  18. FUROSEMIDE [Concomitant]
     Active Substance: FUROSEMIDE
     Dosage: 60 MILLIGRAM
     Route: 048
     Dates: start: 20200424, end: 20200526
  19. FUROSEMIDE [Concomitant]
     Active Substance: FUROSEMIDE
     Dosage: 20 MILLIGRAM
     Route: 048
     Dates: start: 20200429, end: 20200526
  20. FUROSEMIDE [Concomitant]
     Active Substance: FUROSEMIDE
     Dosage: 100 MILLIGRAM
     Dates: start: 20200527
  21. SPIRONOLACTONE [Concomitant]
     Active Substance: SPIRONOLACTONE
     Indication: Localised oedema
     Dosage: 100 MILLIGRAM
     Route: 048
     Dates: start: 20200420, end: 20200423
  22. SPIRONOLACTONE [Concomitant]
     Active Substance: SPIRONOLACTONE
     Dosage: 150 MILLIGRAM
     Route: 048
     Dates: start: 20200424, end: 20200526
  23. SPIRONOLACTONE [Concomitant]
     Active Substance: SPIRONOLACTONE
     Dosage: 50 MILLIGRAM
     Route: 048
     Dates: start: 20200429, end: 20200526
  24. SPIRONOLACTONE [Concomitant]
     Active Substance: SPIRONOLACTONE
     Dosage: 100 MILLIGRAM
     Route: 048
     Dates: start: 20200527
  25. HYDROCHLOROTHIAZIDE [Concomitant]
     Active Substance: HYDROCHLOROTHIAZIDE
     Indication: Localised oedema
     Dosage: 12.5 MILLIGRAM
     Route: 048
     Dates: start: 20200429, end: 20200503

REACTIONS (1)
  - Ascites [Recovered/Resolved]

NARRATIVE: CASE EVENT DATE: 20200727
